FAERS Safety Report 7404109-X (Version None)
Quarter: 2011Q1

REPORT INFORMATION
  Report Type: 
  Country: None (occurrence: None)
  Receive Date: 20110331
  Receipt Date: 20110321
  Transmission Date: 20110831
  Serious: Yes (Hospitalization)
  Sender: FDA-Public Use
  Company Number: 2011MA002917

PATIENT
  Age: 15 Year
  Sex: Female

DRUGS (3)
  1. AMOXICILLIN [Concomitant]
  2. METOCLOPRAMIDE [Suspect]
     Indication: VOMITING
     Dosage: 10 MG; PO
     Route: 048
     Dates: start: 20110308, end: 20110310
  3. DALACIN T [Concomitant]

REACTIONS (3)
  - MYALGIA [None]
  - DYSTONIA [None]
  - MUSCLE TWITCHING [None]
